FAERS Safety Report 5216522-X (Version None)
Quarter: 2007Q1

REPORT INFORMATION
  Report Type: 
  Country: None (occurrence: None)
  Receive Date: 20061130
  Receipt Date: 20060815
  Transmission Date: 20070707
  Serious: Yes (Hospitalization)
  Sender: FDA-Public Use
  Company Number: US200608003825

PATIENT
  Age: 41 Year
  Sex: Male
  Weight: 81.6 kg

DRUGS (3)
  1. ZYPREXA [Suspect]
     Dosage: 15 MG, DAILY (1/D)
     Dates: start: 20050801, end: 20051101
  2. ZOLOFT [Concomitant]
  3. RISPERDAL /SWE/ (RISPERIDONE) [Concomitant]

REACTIONS (3)
  - DIABETES MELLITUS [None]
  - DIABETIC KETOACIDOSIS [None]
  - METABOLIC DISORDER [None]
